FAERS Safety Report 25767505 (Version 2)
Quarter: 2025Q4

REPORT INFORMATION
  Report Type: Report from Study
  Country: PH (occurrence: PH)
  Receive Date: 20250905
  Receipt Date: 20251120
  Transmission Date: 20260118
  Serious: Yes (Hospitalization)
  Sender: OTSUKA
  Company Number: PH-MMM-Otsuka-7T8920GM

PATIENT
  Sex: Female

DRUGS (1)
  1. TOLVAPTAN [Suspect]
     Active Substance: TOLVAPTAN
     Indication: Renal disorder
     Dosage: 0.5 DF, QD (15 MG HALF TABLET IN THE MORNING)
     Dates: start: 202505, end: 202506

REACTIONS (3)
  - Dialysis [Not Recovered/Not Resolved]
  - Wrong technique in product usage process [Unknown]
  - Product use in unapproved indication [Unknown]

NARRATIVE: CASE EVENT DATE: 20250501
